FAERS Safety Report 8589481-X (Version None)
Quarter: 2012Q3

REPORT INFORMATION
  Report Type: 
  Country: None (occurrence: None)
  Receive Date: 20120813
  Receipt Date: 20120730
  Transmission Date: 20120928
  Serious: Yes (Hospitalization)
  Sender: FDA-Public Use
  Company Number: IT-MYLANLABS-2012S1015465

PATIENT
  Age: 76 Year
  Sex: Female

DRUGS (7)
  1. SEREPRILE [Suspect]
     Indication: SENILE PSYCHOSIS
     Route: 048
     Dates: start: 20120628, end: 20120723
  2. RIFAXIMIN [Concomitant]
     Indication: PRODUCT USED FOR UNKNOWN INDICATION
  3. KONAKION [Concomitant]
     Indication: PRODUCT USED FOR UNKNOWN INDICATION
  4. ALPRAZOLAM [Suspect]
     Indication: SENILE DEMENTIA
     Route: 048
     Dates: start: 20120718, end: 20120723
  5. LASIX [Concomitant]
     Indication: PRODUCT USED FOR UNKNOWN INDICATION
  6. ALDACTONE [Concomitant]
     Indication: PRODUCT USED FOR UNKNOWN INDICATION
  7. NEXIUM [Concomitant]
     Indication: PRODUCT USED FOR UNKNOWN INDICATION

REACTIONS (2)
  - SOPOR [None]
  - HEART RATE INCREASED [None]
